FAERS Safety Report 11120282 (Version 1)
Quarter: 2015Q2

REPORT INFORMATION
  Report Type: Spontaneous
  Country: US (occurrence: US)
  Receive Date: 20150518
  Receipt Date: 20150518
  Transmission Date: 20150821
  Serious: Yes (Death, Hospitalization, Other)
  Sender: FDA-Public Use
  Company Number: US-MYLANLABS-2015M1016259

PATIENT

DRUGS (7)
  1. ACICLOVIR [Suspect]
     Active Substance: ACYCLOVIR
     Dosage: 30MG/KG/DAY
     Route: 042
     Dates: start: 201009
  2. ACICLOVIR [Suspect]
     Active Substance: ACYCLOVIR
     Route: 042
  3. VALACICLOVIR [Suspect]
     Active Substance: VALACYCLOVIR HYDROCHLORIDE
     Indication: VARICELLA ZOSTER VIRUS INFECTION
     Dosage: 3G/DAY
     Route: 065
  4. RUBELLA VIRUS VACCINE LIVE ATTEN. [Concomitant]
     Indication: IMMUNISATION
     Route: 065
  5. MUMPS VACCINE, LIVE [Concomitant]
     Indication: IMMUNISATION
     Route: 065
  6. VARICELLA ZOSTER VACCINE [Suspect]
     Active Substance: VARICELLA-ZOSTER VIRUS STRAIN OKA/MERCK LIVE ANTIGEN
     Indication: IMMUNISATION
     Route: 065
     Dates: start: 201003
  7. ACICLOVIR [Suspect]
     Active Substance: ACYCLOVIR
     Indication: VARICELLA ZOSTER VIRUS INFECTION
     Dosage: 800MG/DAY
     Route: 048

REACTIONS (7)
  - Granuloma [Fatal]
  - Pancytopenia [Unknown]
  - Pathogen resistance [Unknown]
  - Pneumonia pneumococcal [Fatal]
  - Multi-organ failure [Fatal]
  - Histiocytosis haematophagic [Fatal]
  - Encephalopathy [Unknown]

NARRATIVE: CASE EVENT DATE: 201009
